FAERS Safety Report 10289465 (Version 2)
Quarter: 2015Q1

REPORT INFORMATION
  Report Type: Spontaneous
  Country: US (occurrence: None)
  Receive Date: 20140707
  Receipt Date: 20150114
  Transmission Date: 20150720
  Serious: Yes (Hospitalization)
  Sender: FDA-Public Use
  Company Number: UNT-2014-002813

PATIENT
  Age: 68 Year
  Sex: Female
  Weight: 86.2 kg

DRUGS (23)
  1. DULCOLAX (BISACODYL) [Concomitant]
     Active Substance: BISACODYL
  2. FEMARA [Concomitant]
     Active Substance: LETROZOLE
  3. LANTUS [Concomitant]
     Active Substance: INSULIN GLARGINE
  4. VIBRAMYCIN [Concomitant]
     Active Substance: DOXYCYCLINE
  5. PLAVIX (CLOPIDOGREL BISULFATE) [Concomitant]
  6. TYVASO [Suspect]
     Active Substance: TREPROSTINIL
     Indication: COR PULMONALE CHRONIC
     Route: 055
     Dates: start: 20110402
  7. COZAAR [Concomitant]
     Active Substance: LOSARTAN POTASSIUM
  8. FEOSOL (FERROUS SULFATE) [Concomitant]
  9. NOVOLOG [Concomitant]
     Active Substance: INSULIN ASPART
  10. PROTONIX (PANTOPRAZOLE SODIUM SESQUIHYDRATE)??? [Concomitant]
  11. LEXAPRO [Concomitant]
     Active Substance: ESCITALOPRAM OXALATE
  12. SYNTHROID [Concomitant]
     Active Substance: LEVOTHYROXINE SODIUM
  13. ALDACTONE /00006201/ (SPIRONOLACTONE) [Concomitant]
  14. NORVASC [Concomitant]
     Active Substance: AMLODIPINE BESYLATE
  15. LASIX (/00032601/ (FUROSEMIDE) [Concomitant]
  16. LUMIGAN (BIMATOPROST) [Concomitant]
  17. ADEMPAS [Suspect]
     Active Substance: RIOCIGUAT
     Indication: PULMONARY ARTERIAL HYPERTENSION
     Route: 048
  18. REVATIO (SILDENAFIL CITRATE) [Concomitant]
  19. COLACE [Concomitant]
     Active Substance: DOCUSATE SODIUM
  20. PROAIR HFA [Concomitant]
     Active Substance: ALBUTEROL SULFATE
  21. TYVASO [Suspect]
     Active Substance: TREPROSTINIL
     Indication: PULMONARY ARTERIAL HYPERTENSION
     Route: 055
     Dates: start: 20110402
  22. LETAIRIS [Concomitant]
     Active Substance: AMBRISENTAN
  23. MICRO-K (POTASSIUM CHLORIDE) [Concomitant]

REACTIONS (12)
  - Dyspnoea exertional [None]
  - Abdominal pain upper [None]
  - Musculoskeletal pain [None]
  - Nausea [None]
  - Hypoxia [None]
  - Reflux gastritis [None]
  - Abdominal distension [None]
  - Vomiting [None]
  - Chest pain [None]
  - Constipation [None]
  - Blood glucose abnormal [None]
  - Haemoglobin abnormal [None]

NARRATIVE: CASE EVENT DATE: 20140604
